FAERS Safety Report 9579837 (Version 4)
Quarter: 2013Q4

REPORT INFORMATION
  Report Type: Spontaneous
  Country: IT (occurrence: IT)
  Receive Date: 20131002
  Receipt Date: 20131125
  Transmission Date: 20140711
  Serious: Yes (Hospitalization)
  Sender: FDA-Public Use
  Company Number: IT-009507513-1309ITA010881

PATIENT
  Age: 50 Year
  Sex: Male

DRUGS (14)
  1. REMERON [Suspect]
     Indication: DEPRESSION
     Dosage: TOTAL DAILY DOSE: 30 MG, FREQUENCY: TOTAL
     Route: 048
     Dates: start: 20130909, end: 20130909
  2. REMERON [Suspect]
     Indication: PERSONALITY DISORDER
     Dosage: 1 DF, QD
  3. REMERON [Suspect]
     Indication: INSOMNIA
  4. PAROXETINE HYDROCHLORIDE [Suspect]
     Indication: DEPRESSION
     Dosage: TOTAL DAILY DOSE: 20 MG, FREQUENCY: TOTAL
     Route: 048
     Dates: start: 20130909, end: 20130909
  5. PAROXETINE HYDROCHLORIDE [Suspect]
     Indication: PERSONALITY DISORDER
     Dosage: 1 DF, QD
  6. PAROXETINE HYDROCHLORIDE [Suspect]
     Indication: INSOMNIA
  7. SEROQUEL [Suspect]
     Indication: DRUG ABUSE
     Dosage: UNKTOTAL DAILY DOSE: 800 MG, FREQUENCY: TOTAL
     Route: 048
     Dates: start: 20130909, end: 20130909
  8. SEROQUEL [Suspect]
     Indication: DEPRESSION
     Dosage: 1 DF, QD
  9. SEROQUEL [Suspect]
     Indication: PERSONALITY DISORDER
  10. SEROQUEL [Suspect]
     Indication: INSOMNIA
  11. TAVOR (LORAZEPAM) [Suspect]
     Indication: DRUG ABUSE
     Dosage: TOTAL DAILY DOSE: 15 MG, FREQUENCY: TOTAL
     Route: 048
     Dates: start: 20130909, end: 20130909
  12. TAVOR (LORAZEPAM) [Suspect]
     Indication: DEPRESSION
     Dosage: 1 DF, QD
  13. TAVOR (LORAZEPAM) [Suspect]
     Indication: PERSONALITY DISORDER
  14. TAVOR (LORAZEPAM) [Suspect]
     Indication: INSOMNIA

REACTIONS (3)
  - Drug abuse [Recovered/Resolved]
  - Insomnia [Recovered/Resolved]
  - Asthenia [Recovered/Resolved]
